FAERS Safety Report 18957338 (Version 2)
Quarter: 2021Q1

REPORT INFORMATION
  Report Type: Spontaneous
  Country: US (occurrence: US)
  Receive Date: 20210302
  Receipt Date: 20210312
  Transmission Date: 20210420
  Serious: No
  Sender: FDA-Public Use
  Company Number: US-GILEAD-2021-0519047

PATIENT
  Age: 75 Year
  Sex: Male
  Weight: 72.6 kg

DRUGS (6)
  1. ORENITRAM [Suspect]
     Active Substance: TREPROSTINIL
     Dosage: UNK
     Route: 048
  2. ADEMPAS [Suspect]
     Active Substance: RIOCIGUAT
     Indication: PRODUCT USED FOR UNKNOWN INDICATION
     Route: 065
  3. AMBRISENTAN [Suspect]
     Active Substance: AMBRISENTAN
     Indication: PULMONARY ARTERIAL HYPERTENSION
     Dosage: UNK
     Route: 065
  4. ORENITRAM [Suspect]
     Active Substance: TREPROSTINIL
     Dosage: UNK
     Route: 048
  5. ORENITRAM [Suspect]
     Active Substance: TREPROSTINIL
     Indication: PULMONARY ARTERIAL HYPERTENSION
     Dosage: 2.25 MG
     Route: 048
  6. TYVASO [Suspect]
     Active Substance: TREPROSTINIL
     Indication: PULMONARY ARTERIAL HYPERTENSION
     Dosage: UNK
     Route: 048
     Dates: start: 20200807

REACTIONS (15)
  - Asthenia [Unknown]
  - Fatigue [Unknown]
  - Periorbital swelling [Unknown]
  - Dizziness [Unknown]
  - Dizziness exertional [Unknown]
  - Paranasal sinus hypersecretion [Unknown]
  - Pain in jaw [Unknown]
  - Palpitations [Unknown]
  - Nasal congestion [Unknown]
  - Drug intolerance [Unknown]
  - Headache [Recovering/Resolving]
  - Feeling abnormal [Unknown]
  - Dyspnoea exertional [Unknown]
  - Vision blurred [Unknown]
  - Blood pressure decreased [Unknown]
